FAERS Safety Report 7718600-X (Version None)
Quarter: 2011Q3

REPORT INFORMATION
  Report Type: 
  Country: None (occurrence: None)
  Receive Date: 20110830
  Receipt Date: 20110321
  Transmission Date: 20111222
  Serious: No
  Sender: FDA-Public Use
  Company Number: US-BAYER-2011-025253

PATIENT
  Age: 66 Year
  Sex: Female

DRUGS (4)
  1. PREMARIN ASAHIKASEI [Concomitant]
  2. CIPROFLOXACIN [Suspect]
     Indication: URINARY TRACT INFECTION
     Dosage: 500 MG, BID
     Route: 048
     Dates: start: 20110311, end: 20110317
  3. PYRAIU [Concomitant]
  4. BONIVA [Concomitant]

REACTIONS (1)
  - BACK PAIN [None]
